FAERS Safety Report 7772306-X (Version None)
Quarter: 2011Q3

REPORT INFORMATION
  Report Type: 
  Country: None (occurrence: None)
  Receive Date: 20110922
  Receipt Date: 20100412
  Transmission Date: 20111222
  Serious: No
  Sender: FDA-Public Use
  Company Number: US-ASTRAZENECA-2007UW01936

PATIENT
  Age: 10785 Day
  Sex: Female
  Weight: 152 kg

DRUGS (27)
  1. CEPHALEXIN [Concomitant]
  2. HALDOL [Concomitant]
     Dates: start: 20000113, end: 20000621
  3. ZOLOFT [Concomitant]
     Dosage: 100 MG TWO TABLET IN MORNING
     Dates: start: 19990827
  4. NAPROXEN [Concomitant]
  5. IBUPROFEN [Concomitant]
  6. DEPO-PROVERA [Concomitant]
  7. SEROQUEL [Suspect]
     Indication: SCHIZOPHRENIA
     Route: 048
     Dates: start: 20020211
  8. RISPERDAL [Concomitant]
     Dosage: 1 TO 2 MG
     Dates: start: 20000817, end: 20011212
  9. GUIATUSSIN AC [Concomitant]
  10. FLAGYL [Concomitant]
  11. SEROQUEL [Suspect]
     Dosage: 100-200 MG
     Route: 048
     Dates: start: 19990827
  12. LOTRISONE [Concomitant]
  13. ALBUTEROL [Concomitant]
  14. TRIMOX [Concomitant]
  15. ALLEGRA [Concomitant]
  16. NYSTATIN [Concomitant]
  17. HALDOL [Concomitant]
     Dosage: 1-2 MG
     Dates: start: 20000817, end: 20011212
  18. DIFLUCAN [Concomitant]
  19. PAXIL [Concomitant]
  20. NEO/POLYMYXIN/HC [Concomitant]
  21. ATENOLOL [Concomitant]
  22. LISINOPRIL [Concomitant]
  23. SYNTHROID [Concomitant]
  24. TERAZOL 1 [Concomitant]
  25. LEVOTHROID [Concomitant]
  26. HALDOL [Concomitant]
     Dates: start: 19990827
  27. TOBRAMYCIN [Concomitant]

REACTIONS (2)
  - BLOOD CHOLESTEROL INCREASED [None]
  - TYPE 2 DIABETES MELLITUS [None]
